FAERS Safety Report 7735681-8 (Version None)
Quarter: 2011Q3

REPORT INFORMATION
  Report Type: 
  Country: None (occurrence: None)
  Receive Date: 20110907
  Receipt Date: 20110824
  Transmission Date: 20111222
  Serious: Yes (Other)
  Sender: FDA-Public Use
  Company Number: JP-MYLANLABS-2011S1017992

PATIENT
  Age: 74 Year
  Sex: Male

DRUGS (1)
  1. TRETINOIN [Suspect]
     Indication: ACUTE PROMYELOCYTIC LEUKAEMIA
     Dosage: 45 MG/M2 DAILY
     Route: 065

REACTIONS (2)
  - HISTIOCYTOSIS HAEMATOPHAGIC [None]
  - RETINOIC ACID SYNDROME [None]
